FAERS Safety Report 16463019 (Version 1)
Quarter: 2020Q3

REPORT INFORMATION
  Report Type: Report from Study
  Country: US (occurrence: US)
  Receive Date: 20190621
  Receipt Date: 20190621
  Transmission Date: 20201104
  Serious: Yes (Other)
  Sender: FDA-Public Use
  Company Number: US-ROCHE-2340648

PATIENT

DRUGS (3)
  1. IDASANUTLIN. [Suspect]
     Active Substance: IDASANUTLIN
     Indication: ESSENTIAL THROMBOCYTHAEMIA
     Route: 065
  2. PEGINTERFERON ALFA?2A. [Suspect]
     Active Substance: PEGINTERFERON ALFA-2A
     Indication: ESSENTIAL THROMBOCYTHAEMIA
     Route: 065
  3. IDASANUTLIN. [Suspect]
     Active Substance: IDASANUTLIN
     Route: 065

REACTIONS (1)
  - Deep vein thrombosis [Unknown]
